FAERS Safety Report 12466355 (Version 1)
Quarter: 2016Q2

REPORT INFORMATION
  Report Type: Spontaneous
  Country: US (occurrence: US)
  Receive Date: 20160615
  Receipt Date: 20160615
  Transmission Date: 20160815
  Serious: Yes (Hospitalization, Other)
  Sender: FDA-Public Use
  Company Number: US-AUROBINDO-AUR-APL-2013-07063

PATIENT

DRUGS (1)
  1. LEVETIRACETAM TABLETS 250 MG [Suspect]
     Active Substance: LEVETIRACETAM
     Indication: EPILEPSY
     Dosage: UNK UNK,UNK,
     Route: 065

REACTIONS (14)
  - Confusional state [Recovered/Resolved]
  - Tremor [Recovered/Resolved]
  - Respiratory failure [Recovered/Resolved]
  - Dyspnoea [Recovered/Resolved]
  - Metabolic acidosis [Recovered/Resolved]
  - Somnolence [Recovered/Resolved]
  - Respiratory distress [Recovered/Resolved]
  - Muscle contractions involuntary [Recovered/Resolved]
  - Acute kidney injury [Recovered/Resolved]
  - Electroencephalogram abnormal [Recovered/Resolved]
  - Anticonvulsant drug level increased [Recovered/Resolved]
  - Drug ineffective [Recovered/Resolved]
  - Toxic encephalopathy [Recovered/Resolved]
  - Opsoclonus myoclonus [Recovered/Resolved]
